FAERS Safety Report 13066211 (Version 1)
Quarter: 2016Q4

REPORT INFORMATION
  Report Type: Spontaneous
  Country: FR (occurrence: FR)
  Receive Date: 20161227
  Receipt Date: 20161227
  Transmission Date: 20170207
  Serious: Yes (Hospitalization)
  Sender: FDA-Public Use
  Company Number: FR-PFIZER INC-2016593079

PATIENT
  Age: 43 Year
  Sex: Female

DRUGS (3)
  1. DOSTINEX [Suspect]
     Active Substance: CABERGOLINE
     Dosage: 3 MG, WEEKLY
     Route: 048
     Dates: start: 2001
  2. DOSTINEX [Suspect]
     Active Substance: CABERGOLINE
     Dosage: 6 MG, WEEKLY
     Route: 048
     Dates: start: 20160926, end: 20161129
  3. LEVOTHYROX [Concomitant]
     Active Substance: LEVOTHYROXINE
     Indication: PITUITARY TUMOUR BENIGN
     Dosage: UNK
     Dates: start: 2001

REACTIONS (4)
  - Suicidal ideation [Recovered/Resolved]
  - Depression [Recovering/Resolving]
  - Blood thyroid stimulating hormone increased [Unknown]
  - Disorientation [Recovered/Resolved]

NARRATIVE: CASE EVENT DATE: 2016
